FAERS Safety Report 14342058 (Version 14)
Quarter: 2020Q3

REPORT INFORMATION
  Report Type: Spontaneous
  Country: DE (occurrence: DE)
  Receive Date: 20180102
  Receipt Date: 20181226
  Transmission Date: 20201105
  Serious: Yes (Life-Threatening, Hospitalization, Other)
  Sender: FDA-Public Use
  Company Number: DE-MYLANLABS-2017M1083308

PATIENT
  Age: 44 Year
  Sex: Male

DRUGS (9)
  1. IBUPROFEN. [Suspect]
     Active Substance: IBUPROFEN
     Indication: ARTHRALGIA
     Dosage: UNK
     Route: 048
  2. IBUPROFEN. [Suspect]
     Active Substance: IBUPROFEN
     Dosage: UNK
     Route: 065
  3. ALLOPURINOL. [Suspect]
     Active Substance: ALLOPURINOL
     Indication: HYPERURICAEMIA
     Dosage: UNK
     Route: 048
  4. IBUPROFEN. [Suspect]
     Active Substance: IBUPROFEN
     Indication: HYPERURICAEMIA
     Dosage: 1, UNK, PRN
     Route: 048
  5. PREDNISOLONE. [Suspect]
     Active Substance: PREDNISOLONE
     Indication: TOXIC EPIDERMAL NECROLYSIS
     Dosage: UNK UNK, PRN
     Route: 042
  6. ETORICOXIB. [Suspect]
     Active Substance: ETORICOXIB
     Indication: HYPERURICAEMIA
     Dosage: UNK
     Route: 048
  7. ETORICOXIB. [Suspect]
     Active Substance: ETORICOXIB
     Dosage: UNK
     Route: 065
  8. ETORICOXIB. [Suspect]
     Active Substance: ETORICOXIB
     Indication: ARTHRALGIA
     Dosage: UNK (LONG TERM THERAPY)
     Route: 048
  9. ALLOPURINOL. [Suspect]
     Active Substance: ALLOPURINOL
     Indication: ARTHRALGIA
     Dosage: UNK (LONG TERM THERAPY)
     Route: 065

REACTIONS (23)
  - Enterococcal infection [Recovered/Resolved]
  - Respiratory fatigue [Recovered/Resolved]
  - Pruritus [Recovered/Resolved]
  - Scab [Recovered/Resolved]
  - Toxic epidermal necrolysis [Recovered/Resolved]
  - Pain [Recovered/Resolved]
  - Oral mucosa erosion [Recovered/Resolved]
  - Blister [Recovered/Resolved]
  - Erythema [Recovered/Resolved]
  - Prerenal failure [Recovered/Resolved]
  - Intensive care unit acquired weakness [Recovered/Resolved]
  - Dehydration [Recovered/Resolved]
  - Conjunctivitis [Recovered/Resolved]
  - Staphylococcal infection [Recovered/Resolved]
  - Dysphagia [Recovered/Resolved]
  - Drug ineffective [Unknown]
  - Skin exfoliation [Recovered/Resolved]
  - Rash [Recovered/Resolved]
  - Renal failure [Recovered/Resolved]
  - Lip erosion [Recovered/Resolved]
  - Skin hyperpigmentation [Recovered/Resolved]
  - Coating in mouth [Recovered/Resolved]
  - Mucosal necrosis [Recovered/Resolved]
